FAERS Safety Report 17437920 (Version 1)
Quarter: 2020Q1

REPORT INFORMATION
  Report Type: Spontaneous
  Country: FR (occurrence: FR)
  Receive Date: 20200219
  Receipt Date: 20200219
  Transmission Date: 20200409
  Serious: Yes (Other)
  Sender: FDA-Public Use
  Company Number: FR-AUROBINDO-AUR-APL-2020-008411

PATIENT
  Age: 22 Year
  Sex: Male

DRUGS (2)
  1. EUPHON [CODEINE;SISYMBRIUM OFFICINALE] [Suspect]
     Active Substance: CODEINE\SISYMBRIUM OFFICINALE WHOLE
     Indication: PRODUCT USED FOR UNKNOWN INDICATION
     Dosage: UNSPECIFIED
     Route: 065
  2. PARACETAMOL [Suspect]
     Active Substance: ACETAMINOPHEN
     Indication: PRODUCT USED FOR UNKNOWN INDICATION
     Dosage: UNSPECIFIED
     Route: 065

REACTIONS (2)
  - Drug abuse [Not Recovered/Not Resolved]
  - Prescription form tampering [Not Recovered/Not Resolved]
